FAERS Safety Report 10222322 (Version 2)
Quarter: 2014Q2

REPORT INFORMATION
  Report Type: Spontaneous
  Country: FR (occurrence: FR)
  Receive Date: 20140606
  Receipt Date: 20140616
  Transmission Date: 20141212
  Serious: Yes (Hospitalization)
  Sender: FDA-Public Use
  Company Number: FR-PFIZER INC-2014152542

PATIENT
  Age: 44 Year
  Sex: Male

DRUGS (2)
  1. EFFEXOR [Suspect]
     Dosage: 60 DF, SINGLE
     Route: 048
     Dates: start: 20140509, end: 20140509
  2. BROMAZEPAM [Suspect]
     Dosage: 30 DF, SINGLE
     Route: 048
     Dates: start: 20140509, end: 20140509

REACTIONS (3)
  - Overdose [Recovered/Resolved]
  - Altered state of consciousness [Recovered/Resolved]
  - Poisoning deliberate [Recovered/Resolved]
